FAERS Safety Report 9295330 (Version 2)
Quarter: 2013Q2

REPORT INFORMATION
  Report Type: Report from Study
  Country: US (occurrence: US)
  Receive Date: 20130517
  Receipt Date: 20130610
  Transmission Date: 20140414
  Serious: Yes (Death)
  Sender: FDA-Public Use
  Company Number: US-ASTELLAS-2013US005062

PATIENT
  Sex: Male
  Weight: 130 kg

DRUGS (5)
  1. ERLOTINIB TABLET [Suspect]
     Indication: LUNG NEOPLASM MALIGNANT
     Dosage: 150 MG, UID/QD
     Route: 065
  2. XANAX [Concomitant]
     Indication: ANXIETY
     Dosage: 0.5 MG, UNKNOWN/D
     Route: 048
  3. DEXAMETHASONE [Concomitant]
     Indication: METASTASES TO CENTRAL NERVOUS SYSTEM
     Dosage: 2 MG AT MORNING, 1MG AT NIGHT
     Route: 048
  4. COUMADIN                           /00014802/ [Concomitant]
     Indication: DEEP VEIN THROMBOSIS
     Dosage: 5 MG, UID/QD
     Route: 048
  5. PANTOPRAZOLE [Concomitant]
     Indication: GASTROOESOPHAGEAL REFLUX DISEASE
     Dosage: 40 MG, UID/QD
     Route: 048

REACTIONS (1)
  - Death [Fatal]
